FAERS Safety Report 6508603-5 (Version None)
Quarter: 2009Q4

REPORT INFORMATION
  Report Type: 
  Country: None (occurrence: None)
  Receive Date: 20091221
  Receipt Date: 20090325
  Transmission Date: 20100525
  Serious: No
  Sender: FDA-Public Use
  Company Number: US-ABBOTT-09P-163-0565125-00

PATIENT
  Sex: Male

DRUGS (1)
  1. NIMBEX [Suspect]
     Indication: SURGERY

REACTIONS (2)
  - HYPERSENSITIVITY [None]
  - RASH [None]
